FAERS Safety Report 8565763-2 (Version None)
Quarter: 2012Q3

REPORT INFORMATION
  Report Type: 
  Country: None (occurrence: None)
  Receive Date: 20120724
  Receipt Date: 20120711
  Transmission Date: 20120928
  Serious: No
  Sender: FDA-Public Use
  Company Number: 2012P1049755

PATIENT
  Age: 65 Year
  Sex: Female

DRUGS (2)
  1. AMICAR [Concomitant]
  2. ARGATROBAN [Suspect]
     Indication: ANTICOAGULANT THERAPY
     Dosage: SEE IMAGE

REACTIONS (5)
  - HAEMATOCRIT DECREASED [None]
  - THROMBOSIS [None]
  - COAGULATION TIME SHORTENED [None]
  - COAGULOPATHY [None]
  - CARDIAC PROCEDURE COMPLICATION [None]
